FAERS Safety Report 14864370 (Version 3)
Quarter: 2018Q2

REPORT INFORMATION
  Report Type: Spontaneous
  Country: CA (occurrence: CA)
  Receive Date: 20180508
  Receipt Date: 20180523
  Transmission Date: 20180711
  Serious: Yes (Hospitalization)
  Sender: FDA-Public Use
  Company Number: CA-BIOMARINAP-CA-2018-118067

PATIENT
  Age: 47 Year
  Sex: Female
  Weight: 103 kg

DRUGS (3)
  1. KUVAN [Suspect]
     Active Substance: SAPROPTERIN DIHYDROCHLORIDE
     Dosage: 2100 MG, QD
     Route: 048
     Dates: start: 20180226, end: 20180228
  2. VITAMINS NOS [Concomitant]
     Active Substance: VITAMINS
     Indication: PRODUCT USED FOR UNKNOWN INDICATION
     Dosage: UNK
  3. KUVAN [Suspect]
     Active Substance: SAPROPTERIN DIHYDROCHLORIDE
     Indication: PHENYLKETONURIA
     Dosage: 2100 MG, QD
     Route: 048
     Dates: start: 20180309

REACTIONS (4)
  - Abdominal discomfort [Unknown]
  - Hepatic enzyme increased [Unknown]
  - Pancreatitis [Unknown]
  - Amino acid level increased [Unknown]

NARRATIVE: CASE EVENT DATE: 201805
